FAERS Safety Report 18812751 (Version 1)
Quarter: 2021Q1

REPORT INFORMATION
  Report Type: Spontaneous
  Country: US (occurrence: US)
  Receive Date: 20210131
  Receipt Date: 20210131
  Transmission Date: 20210419
  Serious: No
  Sender: FDA-Public Use
  Company Number: US-STRIDES ARCOLAB LIMITED-2020SP012109

PATIENT
  Sex: Female

DRUGS (1)
  1. CALCITRIOL. [Suspect]
     Active Substance: CALCITRIOL
     Indication: HEREDITARY HYPOPHOSPHATAEMIC RICKETS
     Dosage: UNK,CONVENTIONAL THERAPY
     Route: 048

REACTIONS (1)
  - Treatment failure [Unknown]
